FAERS Safety Report 4883130-X (Version None)
Quarter: 2006Q1

REPORT INFORMATION
  Report Type: 
  Country: None (occurrence: None)
  Receive Date: 20060117
  Receipt Date: 20060117
  Transmission Date: 20060701
  Serious: Yes (Life-Threatening, Hospitalization)
  Sender: FDA-Public Use
  Company Number: None

PATIENT
  Age: 28 Year
  Sex: Female
  Weight: 72.6 kg

DRUGS (1)
  1. MISOPROSTOL [Suspect]
     Indication: BLIGHTED OVUM
     Dosage: 800 MCG   ONCE    VAG
     Route: 067
     Dates: start: 20060105, end: 20060105

REACTIONS (8)
  - BLOOD PRESSURE DECREASED [None]
  - CHILLS [None]
  - HEART RATE INCREASED [None]
  - INFLUENZA [None]
  - NAUSEA [None]
  - PYREXIA [None]
  - SEPTIC SHOCK [None]
  - VOMITING [None]
